FAERS Safety Report 5028550-8 (Version None)
Quarter: 2006Q2

REPORT INFORMATION
  Report Type: 
  Country: None (occurrence: None)
  Receive Date: 20060615
  Receipt Date: 20060615
  Transmission Date: 20061013
  Serious: Yes (Life-Threatening, Hospitalization, Disabling, Congenital Anomaly)
  Sender: FDA-Public Use
  Company Number: None

PATIENT
  Sex: Female
  Weight: 3.3566 kg

DRUGS (5)
  1. DEMEROL [Suspect]
     Indication: PREGNANCY
     Dosage: 50 MG
     Dates: start: 19841029
  2. PHENERGAN [Suspect]
     Indication: CHEST PAIN
  3. TYLENOL W/ CODEINE NO. 3 [Suspect]
  4. BENTYL [Suspect]
  5. GI COCKTAIL [Concomitant]

REACTIONS (4)
  - DIARRHOEA NEONATAL [None]
  - DRUG EXPOSURE DURING PREGNANCY [None]
  - NEONATAL DISORDER [None]
  - SCREAMING [None]
